FAERS Safety Report 4839513-7 (Version None)
Quarter: 2005Q4

REPORT INFORMATION
  Report Type: 
  Country: None (occurrence: None)
  Receive Date: 20051129
  Receipt Date: 20051004
  Transmission Date: 20060501
  Serious: Yes (Hospitalization, Disabling, Other)
  Sender: FDA-Public Use
  Company Number: US-MERCK-0510USA02429

PATIENT
  Sex: Female
  Weight: 84 kg

DRUGS (8)
  1. VIOXX [Suspect]
     Indication: ARTHRITIS
     Route: 048
  2. PREMARIN [Concomitant]
     Route: 065
  3. LORATADINE [Concomitant]
     Route: 065
  4. ATENOLOL [Concomitant]
     Route: 065
  5. PROZAC [Concomitant]
     Route: 065
  6. PREVACID [Concomitant]
     Route: 065
  7. ZOMIG [Concomitant]
     Route: 065
  8. HYDROCODONE BITARTRATE [Concomitant]
     Route: 065

REACTIONS (4)
  - CEREBROVASCULAR ACCIDENT [None]
  - CONVULSION [None]
  - HEADACHE [None]
  - MYOCARDIAL INFARCTION [None]
